FAERS Safety Report 6558193-6 (Version None)
Quarter: 2010Q1

REPORT INFORMATION
  Report Type: 
  Country: None (occurrence: None)
  Receive Date: 20100126
  Receipt Date: 20100113
  Transmission Date: 20100710
  Serious: Yes (Death, Hospitalization)
  Sender: FDA-Public Use
  Company Number: 2010AC000058

PATIENT
  Age: 64 Year
  Sex: Female

DRUGS (46)
  1. DIGOXIN [Suspect]
     Dosage: 0.25 MG, QD, PO
     Route: 048
     Dates: start: 20030303
  2. ALPRAZOLAM [Concomitant]
  3. WARFARIN [Concomitant]
  4. ATROVENT [Concomitant]
  5. HYDROCHLOROTHIAZIDE [Concomitant]
  6. TRIMOX [Concomitant]
  7. ACETAMINOPHEN AND HYDROCODONE BITARTRATE [Concomitant]
  8. PROPO-N/APAP [Concomitant]
  9. TIAZAC [Concomitant]
  10. DOXEPIN HCL [Concomitant]
  11. DILTIAZEM HCL [Concomitant]
  12. IPRATROPIUM [Concomitant]
  13. CYCLOBENZAPRINE [Concomitant]
  14. HYDROCODONE [Concomitant]
  15. NEUTROPIN [Concomitant]
  16. ISOSORBIDE [Concomitant]
  17. ARTHROTEC [Concomitant]
  18. COMBIVENT [Concomitant]
  19. FUROSEMIDE [Concomitant]
  20. POTASSIUM CHLORIDE [Concomitant]
  21. ZOCOR [Concomitant]
  22. TIZANIDINE HCL [Concomitant]
  23. CEPHALEXIN [Concomitant]
  24. TEQUIN [Concomitant]
  25. PREDNISONE [Concomitant]
  26. GABAPENTIN [Concomitant]
  27. LEVAQUIN [Concomitant]
  28. METHADOSE [Concomitant]
  29. OXYCONTIN [Concomitant]
  30. OXYCODONE HCL AND ACETAMINOPHEN [Concomitant]
  31. ATENOLOL [Concomitant]
  32. BENICAR [Concomitant]
  33. RYTHMOL [Concomitant]
  34. METOLAZONE [Concomitant]
  35. CHLORTHALIDONE [Concomitant]
  36. AMOXICILLIN [Concomitant]
  37. FERRETTS [Concomitant]
  38. GLYCOLAX [Concomitant]
  39. METOCLOPRAM [Concomitant]
  40. PROMETHAZINE [Concomitant]
  41. LISINOPRIL [Concomitant]
  42. COUMADIN [Concomitant]
  43. DOXEPIN HCL [Concomitant]
  44. POTASSIUM [Concomitant]
  45. XANAX [Concomitant]
  46. DUONEB [Concomitant]

REACTIONS (12)
  - ABDOMINAL PAIN [None]
  - CHRONIC OBSTRUCTIVE PULMONARY DISEASE [None]
  - CORONARY ARTERY DISEASE [None]
  - ECONOMIC PROBLEM [None]
  - GASTROINTESTINAL HAEMORRHAGE [None]
  - HYPOKALAEMIA [None]
  - HYPOTENSION [None]
  - IRON DEFICIENCY ANAEMIA [None]
  - MULTIPLE INJURIES [None]
  - PNEUMONIA [None]
  - RENAL FAILURE ACUTE [None]
  - WHITE BLOOD CELL COUNT INCREASED [None]
